FAERS Safety Report 25348820 (Version 1)
Quarter: 2025Q2

REPORT INFORMATION
  Report Type: Spontaneous
  Country: CN (occurrence: CN)
  Receive Date: 20250522
  Receipt Date: 20250522
  Transmission Date: 20250716
  Serious: Yes (Hospitalization)
  Sender: PFIZER
  Company Number: CN-PFIZER INC-202500104695

PATIENT
  Age: 81 Year
  Sex: Female

DRUGS (1)
  1. LORLATINIB [Suspect]
     Active Substance: LORLATINIB
     Indication: Lung cancer metastatic
     Route: 048

REACTIONS (8)
  - Mitral valve incompetence [Recovering/Resolving]
  - Aortic valve incompetence [Recovering/Resolving]
  - Pulmonary arterial hypertension [Recovering/Resolving]
  - Left atrial enlargement [Recovering/Resolving]
  - Right atrial enlargement [Recovering/Resolving]
  - Right ventricular enlargement [Recovering/Resolving]
  - Pericardial effusion [Recovering/Resolving]
  - Pulmonary artery dilatation [Recovering/Resolving]
